FAERS Safety Report 8659220 (Version 9)
Quarter: 2013Q3

REPORT INFORMATION
  Report Type: Spontaneous
  Country: US (occurrence: US)
  Receive Date: 20120711
  Receipt Date: 20130913
  Transmission Date: 20140515
  Serious: Yes (Other)
  Sender: FDA-Public Use
  Company Number: PHEH2012US013469

PATIENT
  Sex: Female

DRUGS (15)
  1. ZOMETA [Suspect]
     Dates: start: 2005, end: 20110601
  2. ACIPHEX [Concomitant]
     Dosage: 20 MG, QD
  3. AGGRENOX [Concomitant]
     Dosage: 25MG ACETYLSALICYLIC ACID AND 200 MG DIPYRIDAMOLE BID
  4. ARIMIDEX [Concomitant]
     Dosage: 1 MG, QD
  5. CHLORTHALIDONE [Concomitant]
     Indication: HYPERTENSION
     Dosage: 25 MG, QD
  6. LIPITOR [Concomitant]
     Dosage: 10 MG, QD
  7. MICRO K [Concomitant]
     Dosage: 10 MEQ, 8QD
  8. ASPIRIN [Concomitant]
     Dosage: 81 MG, QD
  9. VENTOLIN HFA [Concomitant]
     Dosage: 90 UG AS NEEDED
  10. TRAMADOL/APAP [Concomitant]
     Dosage: 37.5 MG TRAMADOL AND 325 MG OF APAP AS NEEDED
  11. NITROSTAT [Concomitant]
     Dosage: 1 DF, PRN
  12. VERAPAMIL [Concomitant]
  13. ADVAIR [Concomitant]
  14. EFFEXOR [Concomitant]
  15. HYGROTON [Concomitant]

REACTIONS (49)
  - Osteonecrosis of jaw [Unknown]
  - Pain [Unknown]
  - Deformity [Unknown]
  - Injury [Unknown]
  - Emotional distress [Unknown]
  - Anxiety [Unknown]
  - Physical disability [Unknown]
  - Osteopenia [Unknown]
  - Breast cancer [Unknown]
  - Fall [Unknown]
  - Depression [Unknown]
  - Gastrooesophageal reflux disease [Unknown]
  - Pneumonia [Unknown]
  - Polymyalgia rheumatica [Unknown]
  - Hypothyroidism [Unknown]
  - Asthma [Unknown]
  - Transient ischaemic attack [Unknown]
  - Alopecia [Unknown]
  - Chronic obstructive pulmonary disease [Unknown]
  - Convulsion [Unknown]
  - Myocardial infarction [Unknown]
  - Anaemia [Unknown]
  - Hepatitis [Unknown]
  - Peripheral vascular disorder [Unknown]
  - Coronary artery disease [Unknown]
  - Hypercholesterolaemia [Unknown]
  - Mitral valve incompetence [Unknown]
  - Atelectasis [Unknown]
  - Bronchitis chronic [Unknown]
  - Pulmonary mass [Unknown]
  - Aortic calcification [Unknown]
  - Arteriosclerosis [Unknown]
  - Spinal osteoarthritis [Unknown]
  - Hepatic cyst [Unknown]
  - Hiatus hernia [Unknown]
  - Periodontitis [Unknown]
  - Arthritis [Unknown]
  - Wound infection [Unknown]
  - Cerebral thrombosis [Unknown]
  - Cerebral infarction [Unknown]
  - Blindness [Unknown]
  - Cerebral small vessel ischaemic disease [Unknown]
  - Exostosis [Unknown]
  - Claustrophobia [Unknown]
  - Pulmonary fibrosis [Unknown]
  - Osteoarthritis [Unknown]
  - Pleural fibrosis [Unknown]
  - Dilatation intrahepatic duct acquired [Unknown]
  - Vertigo [Unknown]
